FAERS Safety Report 10192590 (Version 3)
Quarter: 2014Q2

REPORT INFORMATION
  Report Type: Spontaneous
  Country: JP (occurrence: JP)
  Receive Date: 20140523
  Receipt Date: 20140603
  Transmission Date: 20141212
  Serious: Yes (Life-Threatening, Other)
  Sender: FDA-Public Use
  Company Number: JP-PFIZER INC-2014129772

PATIENT
  Age: 46 Year
  Sex: Male

DRUGS (3)
  1. CHAMPIX [Suspect]
     Indication: NICOTINE DEPENDENCE
     Dosage: 2 MG, DAILY
     Route: 048
     Dates: start: 20140125, end: 20140329
  2. AZILVA [Suspect]
     Indication: HYPERTENSION
     Dosage: 20 MG, DAILY
     Route: 048
     Dates: start: 20140222
  3. E KEPPRA [Suspect]
     Dosage: UNK
     Route: 048
     Dates: start: 20140328, end: 20140329

REACTIONS (7)
  - Loss of consciousness [Recovered/Resolved]
  - Convulsion [Recovered/Resolved]
  - Somnolence [Recovered/Resolved]
  - Hypotension [Unknown]
  - Somnolence [Unknown]
  - Diarrhoea [Unknown]
  - Dizziness [Recovered/Resolved]
